FAERS Safety Report 9114284 (Version 2)
Quarter: 2013Q1

REPORT INFORMATION
  Report Type: Spontaneous
  Country: US (occurrence: US)
  Receive Date: 20130129
  Receipt Date: 20130312
  Transmission Date: 20140127
  Serious: No
  Sender: FDA-Public Use
  Company Number: US-PFIZER INC-2013032156

PATIENT
  Age: 9 Year
  Sex: Male

DRUGS (2)
  1. RAPAMUNE [Suspect]
     Dosage: 1MG/ML SOLUTION 1.8 ML EVERYDAY
     Route: 048
  2. TACROLIMUS [Concomitant]
     Dosage: 1 MG/ML 1.5 ML TWO TIMES A DAY

REACTIONS (2)
  - Product quality issue [Unknown]
  - Laboratory test abnormal [Unknown]
